FAERS Safety Report 4384511-3 (Version None)
Quarter: 2004Q2

REPORT INFORMATION
  Report Type: 
  Country: None (occurrence: None)
  Receive Date: 20040610
  Receipt Date: 20040128
  Transmission Date: 20050107
  Serious: Yes (Disabling)
  Sender: FDA-Public Use
  Company Number: A03200400290

PATIENT
  Age: 72 Year
  Sex: Male

DRUGS (4)
  1. ELOXATIN [Suspect]
     Indication: COLORECTAL CANCER
     Dosage: 85 MG/M2 OTHER - INTRAVENOUS NOS
     Route: 042
     Dates: start: 20031101, end: 20031101
  2. ELOXATIN [Suspect]
     Indication: METASTASES TO LIVER
     Dosage: 85 MG/M2 OTHER - INTRAVENOUS NOS
     Route: 042
     Dates: start: 20031101, end: 20031101
  3. FLUOROURACIL [Concomitant]
  4. LEUCOVORIN [Concomitant]

REACTIONS (1)
  - PARAESTHESIA [None]
